FAERS Safety Report 9688617 (Version 2)
Quarter: 2013Q4

REPORT INFORMATION
  Report Type: Spontaneous
  Country: JP (occurrence: None)
  Receive Date: 20131113
  Receipt Date: 20131127
  Transmission Date: 20140711
  Serious: Yes (Life-Threatening)
  Sender: FDA-Public Use
  Company Number: JP-20130100

PATIENT
  Age: 62 Year
  Sex: Male

DRUGS (1)
  1. LIPIODOL ULTRA FLUIDE [Suspect]
     Indication: THERAPEUTIC EMBOLISATION
     Route: 013

REACTIONS (4)
  - Cerebral artery embolism [None]
  - Off label use [None]
  - Coma [None]
  - Fat embolism [None]
